FAERS Safety Report 5597448-9 (Version None)
Quarter: 2008Q1

REPORT INFORMATION
  Report Type: 
  Country: None (occurrence: None)
  Receive Date: 20080121
  Receipt Date: 20080108
  Transmission Date: 20080703
  Serious: Yes (Hospitalization)
  Sender: FDA-Public Use
  Company Number: IT-JNJFOC-20080104623

PATIENT
  Age: 25 Year
  Sex: Female

DRUGS (2)
  1. ASPIRIN [Suspect]
     Indication: PYREXIA
  2. ASPIRIN [Suspect]
     Indication: CHEST PAIN

REACTIONS (1)
  - OESOPHAGEAL STENOSIS [None]
